FAERS Safety Report 18495936 (Version 1)
Quarter: 2020Q4

REPORT INFORMATION
  Report Type: Spontaneous
  Country: US (occurrence: US)
  Receive Date: 20201112
  Receipt Date: 20201112
  Transmission Date: 20210114
  Serious: No
  Sender: FDA-Public Use
  Company Number: None

PATIENT
  Sex: Male
  Weight: 76.95 kg

DRUGS (5)
  1. MUPIROCIN 2% [Suspect]
     Active Substance: MUPIROCIN
     Indication: PRURITUS
     Dosage: ?          QUANTITY:22 GRAMS (TUBE);?
     Route: 061
     Dates: start: 20201105
  2. MELOXICAM. [Concomitant]
     Active Substance: MELOXICAM
  3. 1 A DAY VITAMIN [Concomitant]
     Active Substance: VITAMINS
  4. KETOCONAZOLE. [Concomitant]
     Active Substance: KETOCONAZOLE
  5. DIPENHYDRAMINE HCL [Concomitant]

REACTIONS (1)
  - Herpes zoster [None]
